FAERS Safety Report 16214942 (Version 1)
Quarter: 2019Q2

REPORT INFORMATION
  Report Type: Report from Study
  Country: CO (occurrence: CO)
  Receive Date: 20190418
  Receipt Date: 20190418
  Transmission Date: 20190711
  Serious: Yes (Hospitalization)
  Sender: FDA-Public Use
  Company Number: CO-TAKEDA-2019TUS022878

PATIENT
  Sex: Male
  Weight: 62 kg

DRUGS (2)
  1. PIPERACILINA [Concomitant]
     Dosage: 4.5 MG, Q6H
  2. VEDOLIZUMAB [Suspect]
     Active Substance: VEDOLIZUMAB
     Indication: CROHN^S DISEASE
     Dosage: 300 MILLIGRAM
     Route: 042
     Dates: start: 20190228

REACTIONS (1)
  - Gastroenteritis [Not Recovered/Not Resolved]
